FAERS Safety Report 5904713-1 (Version None)
Quarter: 2008Q3

REPORT INFORMATION
  Report Type: 
  Country: None (occurrence: None)
  Receive Date: 20080909
  Receipt Date: 20080627
  Transmission Date: 20090109
  Serious: Yes (Death, Hospitalization)
  Sender: FDA-Public Use
  Company Number: 163-20785-08050050

PATIENT
  Age: 72 Year
  Sex: Male

DRUGS (6)
  1. THALOMID [Suspect]
     Indication: MYELODYSPLASTIC SYNDROME
     Dosage: 200 MG, QD, ORAL
     Route: 048
     Dates: start: 20080321, end: 20080407
  2. LASIX [Concomitant]
  3. IRON (IRON) [Concomitant]
  4. FIBERCON (POLYCARBOPHIL CALCIUM) [Concomitant]
  5. METROGEL [Concomitant]
  6. ALLOPURINOL [Concomitant]

REACTIONS (2)
  - ACUTE MYELOID LEUKAEMIA [None]
  - MALIGNANT NEOPLASM PROGRESSION [None]
